FAERS Safety Report 6398907-1 (Version None)
Quarter: 2009Q4

REPORT INFORMATION
  Report Type: 
  Country: None (occurrence: None)
  Receive Date: 20091007
  Receipt Date: 20090928
  Transmission Date: 20100525
  Serious: Yes (Other)
  Sender: FDA-Public Use
  Company Number: 394985

PATIENT
  Age: 21 Year
  Sex: Female
  Weight: 58 kg

DRUGS (10)
  1. THIOPENTAL SODIUM [Suspect]
     Indication: STATUS EPILEPTICUS
     Dosage: TOTAL DOSE: 840 MG/KG
  2. CLONAZEPAM [Concomitant]
  3. PHENYTOIN [Concomitant]
  4. VALPROATE SODIUM [Concomitant]
  5. LEVETIRACETAM [Concomitant]
  6. TOPIRAMATE [Concomitant]
  7. PROPOFOL [Concomitant]
  8. KETAMINE HCL [Concomitant]
  9. MIDAZOLAM HCL [Concomitant]
  10. NOREPINEPHRINE BITARTRATE [Concomitant]

REACTIONS (9)
  - COMPLEX PARTIAL SEIZURES [None]
  - GASTROINTESTINAL NECROSIS [None]
  - HYPOTHERMIA [None]
  - ILEUS PARALYTIC [None]
  - INTESTINAL ISCHAEMIA [None]
  - MYOCLONUS [None]
  - NO THERAPEUTIC RESPONSE [None]
  - STATUS EPILEPTICUS [None]
  - VIRAL UPPER RESPIRATORY TRACT INFECTION [None]
